FAERS Safety Report 7939997-1 (Version None)
Quarter: 2011Q4

REPORT INFORMATION
  Report Type: 
  Country: None (occurrence: None)
  Receive Date: 20111125
  Receipt Date: 20111122
  Transmission Date: 20120403
  Serious: No
  Sender: FDA-Public Use
  Company Number: US-PFIZER INC-2011252337

PATIENT
  Sex: Female

DRUGS (1)
  1. ESTRING [Suspect]
     Dosage: UNK

REACTIONS (5)
  - HYPERSENSITIVITY [None]
  - SWELLING [None]
  - VULVOVAGINAL DISCOMFORT [None]
  - BURNING SENSATION [None]
  - PRURITUS [None]
